FAERS Safety Report 12046831 (Version 1)
Quarter: 2016Q1

REPORT INFORMATION
  Report Type: Spontaneous
  Country: US (occurrence: US)
  Receive Date: 20160209
  Receipt Date: 20160209
  Transmission Date: 20160526
  Serious: No
  Sender: FDA-Public Use
  Company Number: US-AMGEN-USASP2016013320

PATIENT
  Age: 57 Year
  Sex: Female

DRUGS (1)
  1. ENBREL [Suspect]
     Active Substance: ETANERCEPT
     Indication: PRODUCT USED FOR UNKNOWN INDICATION
     Dosage: UNK
     Route: 065

REACTIONS (8)
  - Skin reaction [Unknown]
  - Hypersensitivity [Unknown]
  - Injection site swelling [Unknown]
  - Eye swelling [Unknown]
  - Pruritus [Unknown]
  - Injection site erythema [Unknown]
  - Rash [Unknown]
  - Paraesthesia [Unknown]
